FAERS Safety Report 13030685 (Version 1)
Quarter: 2016Q4

REPORT INFORMATION
  Report Type: Spontaneous
  Country: BR (occurrence: BR)
  Receive Date: 20161215
  Receipt Date: 20161215
  Transmission Date: 20170207
  Serious: Yes (Other)
  Sender: FDA-Public Use
  Company Number: BR-PFIZER INC-2016572399

PATIENT
  Sex: Female
  Weight: 89 kg

DRUGS (2)
  1. DOSTINEX [Suspect]
     Active Substance: CABERGOLINE
     Indication: BLOOD PROLACTIN INCREASED
     Dosage: 2 TABLETS PER WEEK
     Route: 048
     Dates: end: 201510
  2. DOSTINEX [Suspect]
     Active Substance: CABERGOLINE
     Dosage: UNK
     Route: 048
     Dates: start: 201610

REACTIONS (8)
  - Nausea [Unknown]
  - Blood prolactin increased [Unknown]
  - Malaise [Unknown]
  - Mood altered [Unknown]
  - Thrombosis [Unknown]
  - Dizziness [Unknown]
  - Headache [Unknown]
  - Asthenia [Unknown]
